FAERS Safety Report 9215263 (Version 2)
Quarter: 2013Q2

REPORT INFORMATION
  Report Type: Spontaneous
  Country: DO (occurrence: DO)
  Receive Date: 20130405
  Receipt Date: 20130409
  Transmission Date: 20140414
  Serious: Yes (Other)
  Sender: FDA-Public Use
  Company Number: DO-ABBOTT-13P-279-1070266-00

PATIENT
  Age: 29 Year
  Sex: Female
  Weight: 47.22 kg

DRUGS (3)
  1. HUMIRA [Suspect]
     Indication: ANKYLOSING SPONDYLITIS
     Route: 058
     Dates: start: 201207, end: 201302
  2. TRAMADOL [Concomitant]
     Indication: ARTHRALGIA
     Dosage: 2 TIMES DAILY
     Route: 048
     Dates: start: 201207, end: 201209
  3. ACETAMINOPHEN [Concomitant]
     Indication: ARTHRALGIA
     Dosage: 2 TIMES DAILY
     Dates: start: 201207, end: 201209

REACTIONS (1)
  - Tuberculin test positive [Not Recovered/Not Resolved]
